FAERS Safety Report 18497901 (Version 1)
Quarter: 2020Q4

REPORT INFORMATION
  Report Type: Spontaneous
  Country: US (occurrence: US)
  Receive Date: 20201112
  Receipt Date: 20201112
  Transmission Date: 20210114
  Serious: No
  Sender: FDA-Public Use
  Company Number: US-THERAPEUTICSMD-2020TMD04381

PATIENT
  Age: 58 Year
  Sex: Female
  Weight: 68.93 kg

DRUGS (3)
  1. LEVOTHYROXINE. [Concomitant]
     Active Substance: LEVOTHYROXINE
     Dosage: UNK
  2. BIJUVA [Suspect]
     Active Substance: ESTRADIOL\PROGESTERONE
     Indication: HORMONE REPLACEMENT THERAPY
     Dosage: 1 CAPSULES, 1X/DAY IN THE EVENING
     Route: 048
     Dates: start: 20200225, end: 2020
  3. BIJUVA [Suspect]
     Active Substance: ESTRADIOL\PROGESTERONE
     Dosage: 1 CAPSULES, 1X/DAY  IN THE EVENING
     Route: 048
     Dates: start: 20201001

REACTIONS (10)
  - Memory impairment [Unknown]
  - Headache [Not Recovered/Not Resolved]
  - Hot flush [Unknown]
  - Micturition urgency [Recovering/Resolving]
  - Vulvovaginal burning sensation [Recovered/Resolved]
  - Off label use [Not Recovered/Not Resolved]
  - Sleep disorder [Unknown]
  - Pollakiuria [Recovered/Resolved]
  - Urinary tract infection [Recovered/Resolved]
  - Eye irritation [Recovered/Resolved]

NARRATIVE: CASE EVENT DATE: 2020
